FAERS Safety Report 15155162 (Version 2)
Quarter: 2023Q2

REPORT INFORMATION
  Report Type: Spontaneous
  Country: HU (occurrence: HU)
  Receive Date: 20180717
  Receipt Date: 20230526
  Transmission Date: 20230722
  Serious: Yes (Disabling, Other)
  Sender: FDA-Public Use
  Company Number: HU-SA-2018SA165890

PATIENT
  Age: 80 Year
  Sex: Male

DRUGS (6)
  1. CLOPIDOGREL [Interacting]
     Active Substance: CLOPIDOGREL BISULFATE
     Indication: Cardiovascular disorder
     Dosage: UNK
     Route: 048
     Dates: start: 201612
  2. CLOPIDOGREL [Interacting]
     Active Substance: CLOPIDOGREL BISULFATE
     Indication: Prophylaxis
  3. CLOPIDOGREL [Interacting]
     Active Substance: CLOPIDOGREL BISULFATE
     Indication: Anticoagulant therapy
  4. ASPIRIN [Interacting]
     Active Substance: ASPIRIN
     Indication: Cardiovascular disorder
     Dosage: UNK
     Route: 048
     Dates: start: 201612
  5. ASPIRIN [Interacting]
     Active Substance: ASPIRIN
     Indication: Prophylaxis
  6. ASPIRIN [Interacting]
     Active Substance: ASPIRIN
     Indication: Anticoagulant therapy

REACTIONS (7)
  - Blindness [Unknown]
  - Mitral valve incompetence [Unknown]
  - Sudden visual loss [Unknown]
  - Choroidal detachment [Unknown]
  - Vitreous haemorrhage [Unknown]
  - Eye haemorrhage [Unknown]
  - Labelled drug-drug interaction medication error [Unknown]

NARRATIVE: CASE EVENT DATE: 20161201
